FAERS Safety Report 6960357-4 (Version None)
Quarter: 2010Q3

REPORT INFORMATION
  Report Type: 
  Country: None (occurrence: None)
  Receive Date: 20100901
  Receipt Date: 20100825
  Transmission Date: 20110219
  Serious: Yes (Hospitalization)
  Sender: FDA-Public Use
  Company Number: US-GENZYME-POMP-1001075

PATIENT
  Sex: Female
  Weight: 25 kg

DRUGS (3)
  1. MYOZYME [Suspect]
     Indication: GLYCOGEN STORAGE DISEASE TYPE II
     Dosage: 20 MG/KG, 1X/W
     Route: 042
     Dates: start: 20080827
  2. MYOZYME [Suspect]
     Dosage: 20 MG/KG, Q2W
     Route: 042
     Dates: start: 20031127, end: 20080801
  3. ALBUTEROL [Concomitant]
     Indication: PRODUCT USED FOR UNKNOWN INDICATION
     Dosage: UNK UNK, UNK
     Route: 065
     Dates: start: 20081120

REACTIONS (2)
  - CEREBRAL HAEMORRHAGE [None]
  - FALL [None]
